FAERS Safety Report 8520171-5 (Version None)
Quarter: 2012Q3

REPORT INFORMATION
  Report Type: 
  Country: None (occurrence: None)
  Receive Date: 20120719
  Receipt Date: 20120710
  Transmission Date: 20120928
  Serious: Yes (Other)
  Sender: FDA-Public Use
  Company Number: JP-JNJFOC-20120703473

PATIENT
  Age: 70 Year

DRUGS (1)
  1. DORIPENEM MONOHYDRATE [Suspect]
     Indication: PNEUMONIA ASPIRATION
     Dosage: 0.25 G THREE TIMES DAILY TOTALLING TO 0.75 GRAMS/DAY
     Route: 041
     Dates: start: 20120630, end: 20120702

REACTIONS (3)
  - ENTERITIS [None]
  - PLATELET COUNT DECREASED [None]
  - RENAL IMPAIRMENT [None]
